FAERS Safety Report 5414038-9 (Version None)
Quarter: 2007Q3

REPORT INFORMATION
  Report Type: 
  Country: None (occurrence: None)
  Receive Date: 20070814
  Receipt Date: 20070803
  Transmission Date: 20080115
  Serious: Yes (Hospitalization)
  Sender: FDA-Public Use
  Company Number: US-ELI_LILLY_AND_COMPANY-US200707003431

PATIENT
  Age: 42 Year
  Sex: Female
  Weight: 81.632 kg

DRUGS (6)
  1. BYETTA [Suspect]
     Dosage: 5 UG, UNKNOWN
     Route: 058
     Dates: start: 20070703, end: 20070713
  2. SOMA [Concomitant]
     Dosage: 350 MG, 4/D
     Route: 065
  3. LORCET-HD [Concomitant]
     Dosage: UNK, AS NEEDED
     Route: 065
  4. ZYRTEC [Concomitant]
     Dosage: UNK, 2/D
     Route: 065
  5. PREVACID [Concomitant]
     Dosage: 30 MG, DAILY (1/D)
     Route: 065
  6. PROVIGIL [Concomitant]
     Dosage: 20 MG, EACH MORNING
     Route: 065

REACTIONS (1)
  - DERMATITIS ALLERGIC [None]
